FAERS Safety Report 21016219 (Version 2)
Quarter: 2022Q3

REPORT INFORMATION
  Report Type: Report from Study
  Country: US (occurrence: US)
  Receive Date: 20220628
  Receipt Date: 20220804
  Transmission Date: 20221027
  Serious: Yes (Other)
  Sender: FDA-Public Use
  Company Number: US-BRISTOL-MYERS SQUIBB COMPANY-2022-057901

PATIENT
  Age: 57 Year
  Sex: Male
  Weight: 79.83 kg

DRUGS (13)
  1. REVLIMID [Suspect]
     Active Substance: LENALIDOMIDE
     Indication: Plasma cell myeloma
     Route: 048
     Dates: start: 202202
  2. REVLIMID [Suspect]
     Active Substance: LENALIDOMIDE
     Indication: Stem cell transplant
     Route: 048
  3. ELIQUIS [Concomitant]
     Active Substance: APIXABAN
  4. HYDROCODONE [Concomitant]
     Active Substance: HYDROCODONE
  5. LEVOTHYROXINE [Concomitant]
     Active Substance: LEVOTHYROXINE
  6. ACYCLOVIR [Concomitant]
     Active Substance: ACYCLOVIR
  7. TRAZODONE [Concomitant]
     Active Substance: TRAZODONE HYDROCHLORIDE
  8. VITAMIN D3 [Concomitant]
     Active Substance: CHOLECALCIFEROL
  9. BACTRIM [Concomitant]
     Active Substance: SULFAMETHOXAZOLE\TRIMETHOPRIM
  10. GABAPENTIN [Concomitant]
     Active Substance: GABAPENTIN
  11. BIOTENE [GLUCOSE OXIDASE;LACTOPEROXIDASE] [Concomitant]
  12. OMEPRAZOLE [Concomitant]
     Active Substance: OMEPRAZOLE
  13. TRIHEXYPHENIDYL [Concomitant]
     Active Substance: TRIHEXYPHENIDYL

REACTIONS (5)
  - Spinal compression fracture [Unknown]
  - Pain in extremity [Unknown]
  - Dry mouth [Unknown]
  - Off label use [Unknown]
  - Feeling abnormal [Recovering/Resolving]
